FAERS Safety Report 15771641 (Version 1)
Quarter: 2018Q4

REPORT INFORMATION
  Report Type: Spontaneous
  Country: US (occurrence: US)
  Receive Date: 20181228
  Receipt Date: 20181228
  Transmission Date: 20190205
  Serious: Yes (Death)
  Sender: FDA-Public Use
  Company Number: US-SA-2018SA396204

PATIENT
  Age: 46 Year
  Sex: Male

DRUGS (1)
  1. DUPIXENT [Suspect]
     Active Substance: DUPILUMAB
     Dosage: 600 UNK, 1X
     Route: 058
     Dates: start: 20181204

REACTIONS (1)
  - Renal pain [Fatal]

NARRATIVE: CASE EVENT DATE: 20181211
